FAERS Safety Report 12932418 (Version 1)
Quarter: 2016Q4

REPORT INFORMATION
  Report Type: Other
  Country: US (occurrence: US)
  Receive Date: 20161111
  Receipt Date: 20161111
  Transmission Date: 20170207
  Serious: Yes (Hospitalization)
  Sender: FDA-Public Use
  Company Number: US-NOVEL LABORATORIES, INC-2016-04998

PATIENT
  Age: 59 Year
  Sex: Female
  Weight: 82 kg

DRUGS (10)
  1. LINEZOLID. [Suspect]
     Active Substance: LINEZOLID
     Indication: INFECTION
  2. DAPTOMYCIN. [Suspect]
     Active Substance: DAPTOMYCIN
     Indication: INFECTION
  3. CEFEPIME [Suspect]
     Active Substance: CEFEPIME HYDROCHLORIDE
     Indication: URINARY TRACT INFECTION
     Route: 065
  4. MEROPENEM. [Suspect]
     Active Substance: MEROPENEM
     Indication: URINARY TRACT INFECTION
     Route: 065
  5. DAPTOMYCIN. [Suspect]
     Active Substance: DAPTOMYCIN
     Indication: URINARY TRACT INFECTION
     Route: 065
  6. TACROLIMUS. [Concomitant]
     Active Substance: TACROLIMUS
     Indication: IMMUNOSUPPRESSANT DRUG THERAPY
     Dosage: 10 NG/ML IN THE FIRST 3 MONTHS
     Route: 065
  7. METHYLPREDNISOLONE. [Concomitant]
     Active Substance: METHYLPREDNISOLONE
     Indication: IMMUNOSUPPRESSANT DRUG THERAPY
     Dosage: 3 BOLUSES ANTI-THYMOCYTE GLOBULIN INDUCTION ANTI-THYMOCYTE GLOBULIN INDUCTION
     Route: 065
  8. LINEZOLID. [Suspect]
     Active Substance: LINEZOLID
     Indication: URINARY TRACT INFECTION
     Route: 065
  9. MEROPENEM. [Suspect]
     Active Substance: MEROPENEM
     Indication: INFECTION
  10. TACROLIMUS. [Concomitant]
     Active Substance: TACROLIMUS
     Dosage: 8 NG/ML THEREAFTER
     Route: 065

REACTIONS (2)
  - Hyperoxaluria [Unknown]
  - Nephropathy [Unknown]
